FAERS Safety Report 5864494-7 (Version None)
Quarter: 2008Q3

REPORT INFORMATION
  Report Type: 
  Country: None (occurrence: None)
  Receive Date: 20080829
  Receipt Date: 20080708
  Transmission Date: 20090109
  Serious: No
  Sender: FDA-Public Use
  Company Number: US-ABBOTT-08P-163-0461352-00

PATIENT
  Sex: Female
  Weight: 81.266 kg

DRUGS (3)
  1. SIMCOR [Suspect]
     Indication: DYSLIPIDAEMIA
     Dosage: 500MG/20MG, DAILY
     Route: 048
     Dates: start: 20080611
  2. ACETYLSALICYLIC ACID SRT [Concomitant]
     Indication: FLUSHING
     Route: 048
  3. PHYENTERMINE [Concomitant]
     Indication: WEIGHT
     Route: 048

REACTIONS (3)
  - DYSPNOEA [None]
  - FEELING HOT [None]
  - FLUSHING [None]
